FAERS Safety Report 4295223-9 (Version None)
Quarter: 2004Q1

REPORT INFORMATION
  Report Type: 
  Country: None (occurrence: None)
  Receive Date: 20040216
  Receipt Date: 20030415
  Transmission Date: 20041129
  Serious: No
  Sender: FDA-Public Use
  Company Number: US-GLAXOSMITHKLINE-A0405152A

PATIENT
  Age: 43 Year
  Sex: Female

DRUGS (4)
  1. LAMICTAL [Suspect]
     Dosage: 37.5MG PER DAY
     Route: 048
  2. LITHIUM CARBONATE [Concomitant]
  3. NEURONTIN [Concomitant]
  4. LUVOX [Concomitant]

REACTIONS (1)
  - RASH [None]
